FAERS Safety Report 12919924 (Version 1)
Quarter: 2016Q4

REPORT INFORMATION
  Report Type: Spontaneous
  Country: US (occurrence: US)
  Receive Date: 20161107
  Receipt Date: 20161107
  Transmission Date: 20170207
  Serious: Yes (Hospitalization)
  Sender: FDA-Public Use
  Company Number: US-BAYER-2016-067504

PATIENT
  Age: 61 Year
  Sex: Male

DRUGS (10)
  1. TORADOL [Suspect]
     Active Substance: KETOROLAC TROMETHAMINE
     Indication: ARTHRALGIA
     Dosage: UNK
     Route: 065
  2. PONSTEL [Suspect]
     Active Substance: MEFENAMIC ACID
     Indication: PAIN
     Dosage: UNK
     Route: 065
  3. ACETYLSALICYLIC ACID({=100 MG) [Suspect]
     Active Substance: ASPIRIN
     Indication: CARDIAC DISORDER
     Dosage: UNK
     Route: 065
  4. TORADOL [Suspect]
     Active Substance: KETOROLAC TROMETHAMINE
     Indication: PAIN
  5. PONSTEL [Suspect]
     Active Substance: MEFENAMIC ACID
     Indication: ARTHRALGIA
  6. XARELTO [Suspect]
     Active Substance: RIVAROXABAN
     Indication: THROMBOSIS
  7. ANSAID [Suspect]
     Active Substance: FLURBIPROFEN
     Indication: PAIN
  8. ANSAID [Suspect]
     Active Substance: FLURBIPROFEN
     Indication: ARTHRALGIA
     Dosage: UNK
     Route: 065
  9. XARELTO [Suspect]
     Active Substance: RIVAROXABAN
     Indication: ATRIAL FIBRILLATION
     Dosage: 20 MG, UNK
     Route: 048
     Dates: start: 20130326, end: 20150124
  10. XARELTO [Suspect]
     Active Substance: RIVAROXABAN
     Indication: CHEST PAIN

REACTIONS (1)
  - Diverticulum intestinal haemorrhagic [Recovering/Resolving]

NARRATIVE: CASE EVENT DATE: 20150124
